FAERS Safety Report 9851394 (Version 1)
Quarter: 2014Q1

REPORT INFORMATION
  Report Type: Spontaneous
  Country: US (occurrence: US)
  Receive Date: 20140129
  Receipt Date: 20140129
  Transmission Date: 20141002
  Serious: Yes (Other)
  Sender: FDA-Public Use
  Company Number: US-009507513-1401USA011685

PATIENT
  Age: 70 Year
  Sex: Female

DRUGS (6)
  1. DULERA [Suspect]
     Indication: ASTHMA
     Dosage: 2 PUFFS TWICE A DAY
     Route: 055
     Dates: start: 201301
  2. PROVENTIL [Concomitant]
  3. LEVOTHYROXINE SODIUM [Concomitant]
     Route: 048
  4. ATORVASTATIN [Concomitant]
  5. PREDNISONE [Concomitant]
     Route: 048
  6. AZITHROMYCIN [Concomitant]

REACTIONS (3)
  - Asthma [Recovering/Resolving]
  - Drug dose omission [Unknown]
  - Product quality issue [Unknown]
